FAERS Safety Report 10190300 (Version 2)
Quarter: 2014Q2

REPORT INFORMATION
  Report Type: Report from Study
  Country: PL (occurrence: PL)
  Receive Date: 20140522
  Receipt Date: 20140522
  Transmission Date: 20141212
  Serious: Yes (Hospitalization, Other)
  Sender: FDA-Public Use
  Company Number: PL-ONYX-2014-0477

PATIENT
  Age: 62 Year
  Sex: Female

DRUGS (20)
  1. CARFILZOMIB [Suspect]
     Indication: PLASMA CELL MYELOMA
     Route: 042
     Dates: start: 20131028, end: 20131029
  2. CARFILZOMIB [Suspect]
     Route: 042
     Dates: start: 20131106, end: 20131114
  3. CARFILZOMIB [Suspect]
     Route: 042
     Dates: start: 20131127
  4. DEXAMETHASONE [Suspect]
     Indication: PLASMA CELL MYELOMA
     Route: 048
     Dates: start: 20131028
  5. BISOCARD [Concomitant]
     Indication: HYPERTENSION
     Route: 048
     Dates: start: 2008
  6. LECALPIN [Concomitant]
     Indication: HYPERTENSION
     Route: 048
     Dates: start: 2008
  7. RAMIPRIL [Concomitant]
     Indication: HYPERTENSION
     Route: 048
     Dates: start: 2008
  8. ACARD [Concomitant]
     Indication: PROPHYLAXIS
     Route: 048
     Dates: start: 2008
  9. AMARYL [Concomitant]
     Indication: DIABETES MELLITUS
     Route: 048
     Dates: start: 2009
  10. SIOFOR [Concomitant]
     Indication: DIABETES MELLITUS
     Route: 048
     Dates: start: 2009
  11. HEVIRAN [Concomitant]
     Indication: PROPHYLAXIS
     Route: 048
     Dates: start: 2011
  12. KALIPOZ [Concomitant]
     Indication: SUPPLEMENTATION THERAPY
     Route: 048
     Dates: start: 2011
  13. LIV 52 [Concomitant]
     Indication: PROPHYLAXIS
     Route: 048
     Dates: start: 2011
  14. OXYCONTIN [Concomitant]
     Indication: LUMBAR VERTEBRAL FRACTURE
     Route: 048
     Dates: start: 2011
  15. POLPRAZOL [Concomitant]
     Indication: PROPHYLAXIS
     Route: 048
     Dates: start: 2011
  16. MILURIT [Concomitant]
     Indication: PROPHYLAXIS
     Route: 048
     Dates: start: 201107
  17. GABAPENTIN TEVA [Concomitant]
     Indication: POLYNEUROPATHY
     Route: 048
     Dates: start: 201309
  18. GABAPENTIN TEVA [Concomitant]
     Indication: PROPHYLAXIS
  19. MILGAMMA [Concomitant]
     Indication: POLYNEUROPATHY
     Route: 048
     Dates: start: 201309
  20. MILGAMMA [Concomitant]
     Indication: PROPHYLAXIS

REACTIONS (2)
  - Troponin T increased [Recovered/Resolved]
  - Pain in extremity [Not Recovered/Not Resolved]
